FAERS Safety Report 25801761 (Version 3)
Quarter: 2025Q4

REPORT INFORMATION
  Report Type: Spontaneous
  Country: AU (occurrence: AU)
  Receive Date: 20250915
  Receipt Date: 20251027
  Transmission Date: 20260118
  Serious: Yes (Other)
  Sender: MYLAN
  Company Number: AU-MYLANLABS-2025M1077045

PATIENT
  Age: 49 Year
  Sex: Female

DRUGS (5)
  1. REMIFENTANIL [Suspect]
     Active Substance: REMIFENTANIL
     Indication: General anaesthesia
     Dosage: 8 NANOGRAM PER MILLILITRE (MINTO, TCI)
  2. REMIFENTANIL [Suspect]
     Active Substance: REMIFENTANIL
     Dosage: 10 NANOGRAM PER MILLILITRE (CE)
  3. SALINE [Concomitant]
     Active Substance: SODIUM CHLORIDE
     Indication: General anaesthesia
     Dosage: 40 MILLILITER
  4. PROPOFOL [Concomitant]
     Active Substance: PROPOFOL
     Dosage: 4 MCG/ML
  5. PROPOFOL [Concomitant]
     Active Substance: PROPOFOL
     Dosage: 5 MCG/ML (CE ELEVELD MODEL)

REACTIONS (2)
  - Drug ineffective [Recovered/Resolved]
  - Suspected product quality issue [Unknown]
